FAERS Safety Report 8497651-4 (Version None)
Quarter: 2012Q3

REPORT INFORMATION
  Report Type: 
  Country: None (occurrence: None)
  Receive Date: 20120709
  Receipt Date: 20120613
  Transmission Date: 20120928
  Serious: No
  Sender: FDA-Public Use
  Company Number: US-AMGEN-USASP2012033524

PATIENT
  Age: 10 Year
  Sex: Male
  Weight: 29.3 kg

DRUGS (1)
  1. ENBREL [Suspect]
     Indication: JUVENILE ARTHRITIS
     Dosage: 25 MG, QWK
     Route: 058
     Dates: start: 20090901

REACTIONS (3)
  - INJECTION SITE WARMTH [None]
  - INJECTION SITE RASH [None]
  - INJECTION SITE ERYTHEMA [None]
